FAERS Safety Report 11115658 (Version 1)
Quarter: 2015Q2

REPORT INFORMATION
  Report Type: Report from Study
  Country: FR (occurrence: FR)
  Receive Date: 20150515
  Receipt Date: 20150515
  Transmission Date: 20150821
  Serious: Yes (Other)
  Sender: FDA-Public Use
  Company Number: PHHY2015FR055824

PATIENT
  Age: 28 Year
  Sex: Male

DRUGS (1)
  1. GILENYA [Suspect]
     Active Substance: FINGOLIMOD HYDROCHLORIDE
     Indication: RELAPSING-REMITTING MULTIPLE SCLEROSIS
     Dosage: 2 DF, QD
     Route: 065
     Dates: start: 201303, end: 201409

REACTIONS (4)
  - Eye oedema [Recovering/Resolving]
  - Visual acuity reduced [Recovered/Resolved]
  - Off label use [Unknown]
  - Prescribed overdose [Unknown]
